FAERS Safety Report 7915291-X (Version None)
Quarter: 2011Q4

REPORT INFORMATION
  Report Type: 
  Country: None (occurrence: None)
  Receive Date: 20111115
  Receipt Date: 20101129
  Transmission Date: 20120403
  Serious: Yes (Hospitalization)
  Sender: FDA-Public Use
  Company Number: US-UCBSA-019002

PATIENT
  Age: 23 Year
  Sex: Male
  Weight: 52 kg

DRUGS (9)
  1. CIMZIA [Suspect]
     Indication: CROHN'S DISEASE
     Route: 058
     Dates: start: 20100128
  2. CIMZIA [Suspect]
     Route: 058
     Dates: start: 20091231
  3. FLAGYL [Concomitant]
     Indication: CROHN'S DISEASE
     Dates: start: 20050101, end: 20060401
  4. PREDNISONE [Concomitant]
     Dates: start: 20080828, end: 20100401
  5. AZATHIOPRINE [Concomitant]
     Indication: CROHN'S DISEASE
     Dates: start: 20091001
  6. PREDNISONE [Concomitant]
     Indication: CROHN'S DISEASE
     Dates: start: 20030101, end: 20060401
  7. AMINOSALICYLATES [Concomitant]
     Indication: CROHN'S DISEASE
     Dates: start: 20010101, end: 20040101
  8. CIMZIA [Suspect]
     Route: 058
     Dates: start: 20091203, end: 20091217
  9. BUDESONIDE [Concomitant]
     Indication: CROHN'S DISEASE
     Dates: start: 20050101, end: 20060401

REACTIONS (1)
  - PERIRECTAL ABSCESS [None]
